FAERS Safety Report 7307989-1 (Version None)
Quarter: 2011Q1

REPORT INFORMATION
  Report Type: 
  Country: None (occurrence: None)
  Receive Date: 20110223
  Receipt Date: 20110214
  Transmission Date: 20110831
  Serious: Yes (Hospitalization, Other)
  Sender: FDA-Public Use
  Company Number: US-ROXANE LABORATORIES, INC.-2011-RO-00171RO

PATIENT
  Age: 47 Year
  Sex: Female

DRUGS (3)
  1. WEIGHT LOSS SUPPLEMENT [Concomitant]
  2. CALCIUM CARBONATE [Suspect]
     Indication: DYSPEPSIA
  3. IBUPROFEN [Suspect]
     Indication: BACK PAIN

REACTIONS (8)
  - VAGINAL HAEMORRHAGE [None]
  - ANAEMIA [None]
  - MILK-ALKALI SYNDROME [None]
  - RENAL FAILURE ACUTE [None]
  - GASTRITIS EROSIVE [None]
  - DEHYDRATION [None]
  - HYPOVOLAEMIA [None]
  - HYPERCALCAEMIA [None]
